FAERS Safety Report 24402227 (Version 4)
Quarter: 2024Q4

REPORT INFORMATION
  Report Type: Spontaneous
  Country: FR (occurrence: FR)
  Receive Date: 20241007
  Receipt Date: 20241129
  Transmission Date: 20250114
  Serious: Yes (Other)
  Sender: CSL BEHRING
  Company Number: FR-BEH-2024172163

PATIENT
  Age: 51 Year
  Sex: Female
  Weight: 37.1 kg

DRUGS (24)
  1. BERINERT [Suspect]
     Active Substance: HUMAN C1-ESTERASE INHIBITOR
     Indication: Transplant rejection
     Dosage: 20 IU/KG
     Route: 065
     Dates: start: 20240426, end: 20240910
  2. BERINERT [Suspect]
     Active Substance: HUMAN C1-ESTERASE INHIBITOR
     Indication: Transplant rejection
     Dosage: 20 IU/KG
     Route: 065
     Dates: start: 20240426, end: 20240910
  3. BERINERT [Suspect]
     Active Substance: HUMAN C1-ESTERASE INHIBITOR
     Indication: Off label use
     Dosage: UNK
     Route: 065
     Dates: start: 20240428
  4. BERINERT [Suspect]
     Active Substance: HUMAN C1-ESTERASE INHIBITOR
     Indication: Off label use
     Dosage: UNK
     Route: 065
     Dates: start: 20240428
  5. BERINERT [Suspect]
     Active Substance: HUMAN C1-ESTERASE INHIBITOR
     Dosage: 1000 IU
     Route: 065
     Dates: start: 20240502
  6. BERINERT [Suspect]
     Active Substance: HUMAN C1-ESTERASE INHIBITOR
     Dosage: 1000 IU
     Route: 065
     Dates: start: 20240502
  7. BERINERT [Suspect]
     Active Substance: HUMAN C1-ESTERASE INHIBITOR
     Dosage: 1000 IU
     Route: 065
     Dates: start: 20240603
  8. BERINERT [Suspect]
     Active Substance: HUMAN C1-ESTERASE INHIBITOR
     Dosage: 1000 IU
     Route: 065
     Dates: start: 20240603
  9. BERINERT [Suspect]
     Active Substance: HUMAN C1-ESTERASE INHIBITOR
     Dosage: 500 IU
     Route: 065
     Dates: start: 20240828
  10. BERINERT [Suspect]
     Active Substance: HUMAN C1-ESTERASE INHIBITOR
     Dosage: 500 IU
     Route: 065
     Dates: start: 20240828
  11. HUMAN IMMUNOGLOBULIN G [Suspect]
     Active Substance: HUMAN IMMUNOGLOBULIN G
     Indication: Transplant rejection
     Dosage: UNK
     Route: 042
  12. HUMAN IMMUNOGLOBULIN G [Suspect]
     Active Substance: HUMAN IMMUNOGLOBULIN G
     Indication: Off label use
  13. ALBUTEIN [Suspect]
     Active Substance: ALBUMIN HUMAN
     Dosage: 75 IU
     Route: 065
     Dates: start: 20240724
  14. ALBUTEIN [Suspect]
     Active Substance: ALBUMIN HUMAN
     Dosage: 50 IU
     Route: 065
     Dates: start: 20240726
  15. ALBUTEIN [Suspect]
     Active Substance: ALBUMIN HUMAN
     Dosage: 50 IU
     Route: 065
     Dates: start: 20240727
  16. ALBUTEIN [Suspect]
     Active Substance: ALBUMIN HUMAN
     Dosage: 75 IU
     Route: 065
     Dates: start: 20240730
  17. ALBUTEIN [Suspect]
     Active Substance: ALBUMIN HUMAN
     Dosage: 50 IU
     Route: 065
     Dates: start: 20240731
  18. RITUXIMAB [Concomitant]
     Active Substance: RITUXIMAB
  19. PROGRAF [Concomitant]
     Active Substance: TACROLIMUS
     Dosage: 12 MG
     Route: 048
     Dates: start: 20240213, end: 20240915
  20. MYFORTIC [Concomitant]
     Active Substance: MYCOPHENOLATE SODIUM
     Dosage: 1080
     Route: 048
     Dates: start: 20240802, end: 20240915
  21. CERTICAN [Concomitant]
     Active Substance: EVEROLIMUS
     Dosage: 1 MG
     Route: 048
     Dates: end: 20240915
  22. BELATACEPT [Concomitant]
     Active Substance: BELATACEPT
     Dosage: UNK
     Route: 042
     Dates: start: 20240909, end: 20240909
  23. DARATUMUMAB [Concomitant]
     Active Substance: DARATUMUMAB
     Indication: Off label use
     Dosage: UNK
     Route: 042
     Dates: start: 20240729, end: 20240729
  24. ALBUMIN HUMAN [Concomitant]
     Active Substance: ALBUMIN HUMAN
     Indication: Plasmapheresis
     Dosage: 25 BATCHES

REACTIONS (6)
  - Cardiogenic shock [Fatal]
  - Transplant dysfunction [Unknown]
  - Transplant rejection [Not Recovered/Not Resolved]
  - Off label use [Unknown]
  - Off label use [Unknown]
  - Treatment noncompliance [Unknown]

NARRATIVE: CASE EVENT DATE: 20240920
